FAERS Safety Report 8167779-7 (Version None)
Quarter: 2012Q1

REPORT INFORMATION
  Report Type: 
  Country: None (occurrence: None)
  Receive Date: 20120227
  Receipt Date: 20120221
  Transmission Date: 20120608
  Serious: Yes (Other)
  Sender: FDA-Public Use
  Company Number: JP-B.I. PHARMACEUTICALS,INC./RIDGEFIELD-2012-BP-02370NB

PATIENT
  Age: 42 Year
  Sex: Male

DRUGS (5)
  1. CARVEDILOL [Concomitant]
     Dosage: 10 MG
     Route: 048
     Dates: start: 20100106
  2. ASPIRIN [Concomitant]
     Dosage: 100 MG
     Route: 048
     Dates: start: 20100106
  3. LANSOPRAZOLE [Concomitant]
     Dosage: 15 MG
     Route: 048
     Dates: start: 20100106
  4. NICORANTA [Concomitant]
     Dosage: 10 MG
     Route: 048
     Dates: start: 20100106
  5. PRADAXA [Suspect]
     Indication: ATRIAL FIBRILLATION
     Dosage: 300 MG
     Route: 048
     Dates: start: 20110629, end: 20120207

REACTIONS (3)
  - OESOPHAGEAL ULCER [None]
  - GASTRIC HAEMORRHAGE [None]
  - OESOPHAGEAL HAEMORRHAGE [None]
